FAERS Safety Report 5534292-2 (Version None)
Quarter: 2007Q4

REPORT INFORMATION
  Report Type: 
  Country: None (occurrence: None)
  Receive Date: 20071203
  Receipt Date: 20071203
  Transmission Date: 20080405
  Serious: Yes (Other)
  Sender: FDA-Public Use
  Company Number: None

PATIENT
  Sex: Female
  Weight: 63.5036 kg

DRUGS (1)
  1. CEFTRIAXONE [Suspect]
     Indication: OSTEOARTHRITIS
     Dosage: 1GM DAILY IV
     Route: 042
     Dates: start: 20071107, end: 20071129

REACTIONS (3)
  - CHILLS [None]
  - PARAESTHESIA [None]
  - VOMITING [None]
